FAERS Safety Report 11992614 (Version 1)
Quarter: 2016Q1

REPORT INFORMATION
  Report Type: Spontaneous
  Country: US (occurrence: US)
  Receive Date: 20160203
  Receipt Date: 20160203
  Transmission Date: 20160526
  Serious: No
  Sender: FDA-Public Use
  Company Number: US-UCBSA-2015011668

PATIENT

DRUGS (5)
  1. KEPPRA [Suspect]
     Active Substance: LEVETIRACETAM
     Dosage: 3000 MG
     Dates: start: 2015
  2. ONFI [Concomitant]
     Active Substance: CLOBAZAM
     Dosage: 30 MG
  3. ONFI [Concomitant]
     Active Substance: CLOBAZAM
     Dosage: 20 MG
  4. ONFI [Concomitant]
     Active Substance: CLOBAZAM
     Indication: SEIZURE
     Dosage: 10 MG
  5. KEPPRA [Suspect]
     Active Substance: LEVETIRACETAM
     Indication: SEIZURE
     Dosage: 500 MG IN THE MORNING AND 1000 MG IN THE EVENING (1500 MG A DAY), 2X/DAY (BID)

REACTIONS (10)
  - Pruritus [Unknown]
  - Drug effect decreased [Unknown]
  - Pain in extremity [Unknown]
  - Mood swings [Unknown]
  - Somnolence [Unknown]
  - Hypersensitivity [Unknown]
  - Decreased appetite [Unknown]
  - Back pain [Unknown]
  - Formication [Unknown]
  - Vision blurred [Unknown]

NARRATIVE: CASE EVENT DATE: 2015
